FAERS Safety Report 6289195-5 (Version None)
Quarter: 2009Q3

REPORT INFORMATION
  Report Type: 
  Country: None (occurrence: None)
  Receive Date: 20090729
  Receipt Date: 20071113
  Transmission Date: 20100115
  Serious: Yes (Hospitalization)
  Sender: FDA-Public Use
  Company Number: US-ASTRAZENECA-2006UW20184

PATIENT
  Age: 13216 Day
  Sex: Male
  Weight: 94.3 kg

DRUGS (44)
  1. SEROQUEL [Suspect]
     Indication: BIPOLAR DISORDER
     Route: 048
     Dates: start: 19970101, end: 20060101
  2. SEROQUEL [Suspect]
     Indication: SCHIZOPHRENIA
     Route: 048
     Dates: start: 19970101, end: 20060101
  3. SEROQUEL [Suspect]
     Route: 048
     Dates: start: 19970601, end: 20050301
  4. SEROQUEL [Suspect]
     Route: 048
     Dates: start: 19970601, end: 20050301
  5. SEROQUEL [Suspect]
     Dosage: 25-600 MG
     Route: 048
     Dates: start: 19980615, end: 20060918
  6. SEROQUEL [Suspect]
     Dosage: 25-600 MG
     Route: 048
     Dates: start: 19980615, end: 20060918
  7. ABILIFY [Suspect]
     Indication: PSYCHOTIC DISORDER
     Dosage: 150-300 MG
     Dates: start: 20040101
  8. ABILIFY [Suspect]
     Dosage: 10-15 MG
     Route: 048
     Dates: start: 20050305, end: 20080529
  9. NAVANE [Suspect]
     Dosage: DOSAGE UNSURE
     Dates: start: 19940101
  10. NAVANE [Suspect]
     Dosage: 2-10 MG
     Route: 048
     Dates: start: 19960924, end: 19980615
  11. DEPAKOTE [Suspect]
     Route: 048
     Dates: start: 19931201, end: 19960924
  12. CLONIDINE [Suspect]
     Dosage: 0.1-0.2 MG
     Route: 048
     Dates: start: 19960924
  13. GEODON [Concomitant]
     Indication: HALLUCINATION, AUDITORY
  14. GEODON [Concomitant]
     Indication: TACHYPHRENIA
  15. GEODON [Concomitant]
     Indication: BIPOLAR DISORDER
  16. GEODON [Concomitant]
     Dosage: 20-120 MG
     Route: 048
     Dates: start: 20041120
  17. GEODON [Concomitant]
     Dosage: 20-120 MG
     Route: 048
     Dates: start: 20041120
  18. GEODON [Concomitant]
     Dosage: 20-120 MG
     Route: 048
     Dates: start: 20041120
  19. NAVANE (THIOTHIXINE) [Concomitant]
     Dates: start: 19940101
  20. GLIMEPIRIDE [Concomitant]
     Dosage: 1-4 MG
     Dates: start: 20051026
  21. BENICAR [Concomitant]
     Dates: start: 20061222
  22. JANUVIA [Concomitant]
     Dosage: 50-100 MG
     Route: 048
     Dates: start: 20070301
  23. JANUMET [Concomitant]
     Indication: DIABETES MELLITUS
     Dosage: 50-500 MG
     Route: 048
     Dates: start: 20070929
  24. WELLBUTRIN [Concomitant]
     Indication: DEPRESSION
     Dosage: 75-150 MG, THREE TIMES A DAY
     Route: 048
     Dates: start: 19931201
  25. PAXIL [Concomitant]
     Dates: start: 19980505
  26. COGENTIN [Concomitant]
     Route: 048
     Dates: start: 19960924
  27. ATARAX [Concomitant]
     Dates: start: 19980615
  28. BENADRYL [Concomitant]
     Indication: RASH
     Route: 048
     Dates: start: 19980615
  29. LAMICTAL [Concomitant]
     Indication: BIPOLAR DISORDER
     Dosage: 50-200 MG
     Route: 048
     Dates: start: 20080424
  30. ADDERALL XR 5 [Concomitant]
     Dates: start: 20030113
  31. METHYLPREDNISOLONE [Concomitant]
     Dates: start: 20030605
  32. GLYBURIDE [Concomitant]
     Indication: DIABETES MELLITUS
     Dates: start: 20041007
  33. HYDRODIURIL [Concomitant]
     Route: 048
     Dates: start: 20080228
  34. CYMBALTA [Concomitant]
     Dosage: 20-60 MG
     Route: 048
     Dates: start: 20080411
  35. GLUCOPHAGE XR [Concomitant]
     Dates: start: 20080228
  36. FOLIC ACID [Concomitant]
     Dates: start: 20080228
  37. PROMETHAZINE [Concomitant]
     Dates: start: 20080228
  38. FLURAZEPAM [Concomitant]
     Dates: start: 20080228
  39. AMLODIPINE [Concomitant]
     Dates: start: 20080228
  40. OXCARBAZEPINE [Concomitant]
     Dates: start: 20080229
  41. REMERON [Concomitant]
     Indication: SLEEP DISORDER
     Dates: start: 20070830
  42. ZOLPIDEM [Concomitant]
     Dates: start: 20070910
  43. VICOPROFEN [Concomitant]
     Dosage: 7.5/200 MG
     Route: 048
     Dates: start: 20060608
  44. TRAZODONE HCL [Concomitant]
     Dates: start: 20041212

REACTIONS (5)
  - BIPOLAR I DISORDER [None]
  - DEPRESSION [None]
  - DIABETES MELLITUS [None]
  - TYPE 2 DIABETES MELLITUS [None]
  - WEIGHT INCREASED [None]
